FAERS Safety Report 9097301 (Version 1)
Quarter: 2013Q1

REPORT INFORMATION
  Report Type: Spontaneous
  Country: US (occurrence: US)
  Receive Date: 20130212
  Receipt Date: 20130212
  Transmission Date: 20140127
  Serious: Yes (Other)
  Sender: FDA-Public Use
  Company Number: CHPA2013US002725

PATIENT
  Age: 61 Year
  Sex: Female

DRUGS (5)
  1. 4 WAY SALINE MOISTURIZING MIST [Suspect]
     Indication: EPISTAXIS
     Dosage: UNK, QD
     Route: 045
  2. OMEPRAZOLE [Concomitant]
     Dosage: UNK, UNK
  3. CLOPIDOGREL [Concomitant]
     Dosage: UNK, UNK
  4. ASACOL [Concomitant]
     Dosage: UNK, UNK
  5. PRAVASTATIN [Concomitant]
     Dosage: UNK, UNK

REACTIONS (3)
  - Epistaxis [Not Recovered/Not Resolved]
  - Therapeutic response unexpected [Unknown]
  - Off label use [Unknown]
